FAERS Safety Report 13737724 (Version 1)
Quarter: 2017Q3

REPORT INFORMATION
  Report Type: Spontaneous
  Country: US (occurrence: US)
  Receive Date: 20170710
  Receipt Date: 20170710
  Transmission Date: 20171127
  Serious: Yes (Other)
  Sender: FDA-Public Use
  Company Number: US-SAOL THERAPEUTICS-2016SAO00354

PATIENT
  Age: 51 Year
  Sex: Female

DRUGS (3)
  1. DILAUDID [Suspect]
     Active Substance: HYDROMORPHONE HYDROCHLORIDE
     Dosage: 15.173 MG\DAY
     Dates: start: 20160724
  2. BACLOFEN. [Suspect]
     Active Substance: BACLOFEN
     Indication: PAIN
     Dosage: 40.967 ?G, \DAY
     Route: 037
     Dates: start: 20160724
  3. ROPIVACAINE [Suspect]
     Active Substance: ROPIVACAINE
     Dosage: 273.12 ?G \DAY
     Dates: start: 20160724

REACTIONS (3)
  - Device battery issue [Unknown]
  - Therapy non-responder [Unknown]
  - Off label use [Unknown]

NARRATIVE: CASE EVENT DATE: 20160720
